FAERS Safety Report 24150819 (Version 1)
Quarter: 2024Q3

REPORT INFORMATION
  Report Type: Spontaneous
  Country: US (occurrence: US)
  Receive Date: 20240730
  Receipt Date: 20240730
  Transmission Date: 20241017
  Serious: Yes (Hospitalization, Other)
  Sender: ROCHE
  Company Number: US-ROCHE-10000031931

PATIENT
  Sex: Male

DRUGS (1)
  1. VABYSMO [Suspect]
     Active Substance: FARICIMAB\FARICIMAB-SVOA
     Indication: Product used for unknown indication
     Route: 065

REACTIONS (5)
  - Dizziness [Unknown]
  - Ear discomfort [Unknown]
  - Vomiting [Unknown]
  - Deafness [Unknown]
  - Dementia Alzheimer^s type [Unknown]
